FAERS Safety Report 9330113 (Version 1)
Quarter: 2013Q2

REPORT INFORMATION
  Report Type: Spontaneous
  Country: US (occurrence: US)
  Receive Date: 20130604
  Receipt Date: 20130604
  Transmission Date: 20140414
  Serious: Yes (Other)
  Sender: FDA-Public Use
  Company Number: US-ASTRAZENECA-2013SE37994

PATIENT
  Sex: Male

DRUGS (3)
  1. BRILINTA [Suspect]
     Indication: ISCHAEMIC HEART DISEASE PROPHYLAXIS
     Route: 048
     Dates: start: 2013, end: 2013
  2. ASPIRIN [Suspect]
     Route: 065
  3. ANTICOAGULANT [Suspect]
     Route: 065

REACTIONS (3)
  - Deep vein thrombosis [Unknown]
  - Abdominal pain [Unknown]
  - Dyspnoea [Unknown]
